FAERS Safety Report 10012792 (Version 4)
Quarter: 2014Q1

REPORT INFORMATION
  Report Type: Spontaneous
  Country: US (occurrence: US)
  Receive Date: 20140314
  Receipt Date: 20140326
  Transmission Date: 20141002
  Serious: Yes (Disabling, Other)
  Sender: FDA-Public Use
  Company Number: CHPA2013US017136

PATIENT
  Age: 83 Year
  Sex: Male

DRUGS (4)
  1. VOLTAREN GEL [Suspect]
     Indication: ARTHRALGIA
     Dosage: 4 G, BID
     Route: 061
     Dates: start: 20131111
  2. VOLTAREN GEL [Suspect]
     Indication: OFF LABEL USE
  3. VOLTAREN GEL [Suspect]
     Indication: ARTHRITIS
  4. ANTIHYPERTENSIVE DRUGS [Concomitant]

REACTIONS (9)
  - Disability [Unknown]
  - Loss of consciousness [Recovering/Resolving]
  - Fall [Recovering/Resolving]
  - Rib fracture [Recovering/Resolving]
  - Head injury [Recovering/Resolving]
  - Joint swelling [Recovering/Resolving]
  - Pruritus genital [Recovered/Resolved]
  - Drug administered at inappropriate site [Unknown]
  - Inappropriate schedule of drug administration [Unknown]
